FAERS Safety Report 9232728 (Version 2)
Quarter: 2013Q2

REPORT INFORMATION
  Report Type: Spontaneous
  Country: US (occurrence: None)
  Receive Date: 20121031
  Receipt Date: 20130107
  Transmission Date: 20140414
  Serious: Yes (Other)
  Sender: FDA-Public Use
  Company Number: PHEH2012US011865

PATIENT
  Age: 50 Year
  Sex: Female
  Weight: 105.2 kg

DRUGS (9)
  1. GILENYA [Suspect]
     Indication: MULTIPLE SCLEROSIS
     Route: 048
     Dates: start: 20120501, end: 20120703
  2. NUVIGIL (ARMODAFINIL) [Concomitant]
  3. METOPROLOL (METOPROLOL) [Concomitant]
  4. ZYRTEC (CETIRIZINE HYDROCHLORIDE) [Concomitant]
  5. PREVACID (LANSOPRAZOLE) [Concomitant]
  6. FAMOTIDINE (FAMOTIDINE) [Concomitant]
  7. CYMBALTA (DULOXETINE HYDROCHLORIDE) [Concomitant]
  8. FLEXERIL (CYCLOBENZAPRINE HYDROCHLORIDE0 [Concomitant]
  9. FIORICET (BUTALBITAL, CAFFEINE, PARACETAMOL) [Concomitant]

REACTIONS (8)
  - Optic neuritis [None]
  - Hyperhidrosis [None]
  - Tachycardia [None]
  - Musculoskeletal stiffness [None]
  - Dysphagia [None]
  - Joint stiffness [None]
  - Constipation [None]
  - Dizziness [None]
